FAERS Safety Report 4416437-0 (Version None)
Quarter: 2004Q3

REPORT INFORMATION
  Report Type: 
  Country: None (occurrence: None)
  Receive Date: 20040802
  Receipt Date: 20040715
  Transmission Date: 20050211
  Serious: Yes (Hospitalization)
  Sender: FDA-Public Use
  Company Number: 2004AP03488

PATIENT
  Age: 80 Year
  Sex: Male

DRUGS (9)
  1. IRESSA [Suspect]
     Indication: NON-SMALL CELL LUNG CANCER
     Dosage: 250 MG DAILY PO
     Route: 048
     Dates: start: 20040614, end: 20040626
  2. GASTER D [Concomitant]
  3. TICLOPIDINE HCL [Concomitant]
  4. BUFFERIN [Concomitant]
  5. HARNAL [Concomitant]
  6. AVISHOT [Concomitant]
  7. MAGNESIUM OXIDE [Concomitant]
  8. PRIMPERAN INJ [Concomitant]
  9. LASIX [Concomitant]

REACTIONS (5)
  - CONDITION AGGRAVATED [None]
  - DISSEMINATED INTRAVASCULAR COAGULATION [None]
  - HYPOXIA [None]
  - IDIOPATHIC THROMBOCYTOPENIC PURPURA [None]
  - PLATELET COUNT DECREASED [None]
